FAERS Safety Report 8156889-6 (Version None)
Quarter: 2012Q1

REPORT INFORMATION
  Report Type: 
  Country: None (occurrence: None)
  Receive Date: 20120222
  Receipt Date: 20120214
  Transmission Date: 20120608
  Serious: Yes (Death)
  Sender: FDA-Public Use
  Company Number: ZA-GLAXOSMITHKLINE-B0780466A

PATIENT
  Age: 3 Year
  Sex: Female

DRUGS (1)
  1. ZOFRAN [Suspect]
     Indication: VOMITING
     Route: 065

REACTIONS (2)
  - MYOCARDIAL INFARCTION [None]
  - LONG QT SYNDROME [None]
